FAERS Safety Report 4970461-8 (Version None)
Quarter: 2006Q2

REPORT INFORMATION
  Report Type: 
  Country: None (occurrence: None)
  Receive Date: 20060406
  Receipt Date: 20060320
  Transmission Date: 20061013
  Serious: Yes (Death, Other)
  Sender: FDA-Public Use
  Company Number: GB200603005243

PATIENT
  Age: 38 Year
  Sex: Female

DRUGS (4)
  1. FLUOXETINE HCL [Suspect]
     Dates: end: 20050413
  2. FLUOXETINE HCL [Suspect]
     Dates: start: 20050522
  3. CITALOPRAM HYDROBROMIDE [Concomitant]
  4. POTASSIUM CHLORIDE [Concomitant]

REACTIONS (12)
  - BLOOD POTASSIUM DECREASED [None]
  - CARBON DIOXIDE INCREASED [None]
  - CARDIAC ARREST [None]
  - DRUG TOXICITY [None]
  - GASTRIC HAEMORRHAGE [None]
  - GASTRITIS ALCOHOLIC [None]
  - HEPATIC STEATOSIS [None]
  - HYPERKALAEMIA [None]
  - NAUSEA [None]
  - OVERDOSE [None]
  - SUDDEN DEATH [None]
  - VOMITING [None]
